FAERS Safety Report 6850920-3 (Version None)
Quarter: 2010Q3

REPORT INFORMATION
  Report Type: 
  Country: None (occurrence: None)
  Receive Date: 20100716
  Receipt Date: 20071023
  Transmission Date: 20110219
  Serious: No
  Sender: FDA-Public Use
  Company Number: US-PFIZER INC-2007090647

PATIENT
  Age: 53 Year
  Sex: Female
  Weight: 70.3 kg

DRUGS (5)
  1. CHANTIX [Suspect]
     Indication: SMOKING CESSATION THERAPY
     Dates: start: 20071014
  2. PROZAC [Concomitant]
  3. TRAZODONE HYDROCHLORIDE [Concomitant]
  4. FLEXERIL [Concomitant]
  5. OXYCODONE HCL [Concomitant]

REACTIONS (2)
  - PRURITUS [None]
  - RASH [None]
